FAERS Safety Report 19673158 (Version 1)
Quarter: 2021Q3

REPORT INFORMATION
  Report Type: Spontaneous
  Country: CA (occurrence: CA)
  Receive Date: 20210809
  Receipt Date: 20210809
  Transmission Date: 20211014
  Serious: Yes (Hospitalization)
  Sender: FDA-Public Use
  Company Number: CA-ACCORD-234500

PATIENT
  Age: 71 Year
  Sex: Male

DRUGS (12)
  1. DEXILANT [Concomitant]
     Active Substance: DEXLANSOPRAZOLE
  2. FENTANYL. [Concomitant]
     Active Substance: FENTANYL
  3. OXALIPLATIN. [Suspect]
     Active Substance: OXALIPLATIN
     Indication: OESOPHAGEAL CARCINOMA
  4. HYDROMORPHONE/HYDROMORPHONE HYDROCHLORIDE [Concomitant]
     Active Substance: HYDROMORPHONE
  5. LAX?A?DAY [Concomitant]
     Active Substance: POLYETHYLENE GLYCOL 3350
  6. OXAZEPAM. [Concomitant]
     Active Substance: OXAZEPAM
  7. FLUOROURACIL. [Suspect]
     Active Substance: FLUOROURACIL
     Indication: OESOPHAGEAL CARCINOMA
  8. LANTUS [Concomitant]
     Active Substance: INSULIN GLARGINE
     Dosage: SOLUTION SUBCUTANEOUS
  9. DOCETAXEL. [Suspect]
     Active Substance: DOCETAXEL
     Indication: OESOPHAGEAL CARCINOMA
     Route: 065
  10. LEUCOVORIN. [Suspect]
     Active Substance: LEUCOVORIN
     Indication: OESOPHAGEAL CARCINOMA
  11. ATENOLOL/ATENOLOL HYDROCHLORIDE [Concomitant]
     Active Substance: ATENOLOL HYDROCHLORIDE
  12. DECADRON [Concomitant]
     Active Substance: DEXAMETHASONE

REACTIONS (5)
  - Asthenia [Unknown]
  - Febrile neutropenia [Unknown]
  - Atrial fibrillation [Unknown]
  - Back pain [Unknown]
  - Off label use [Unknown]
